FAERS Safety Report 23177616 (Version 2)
Quarter: 2023Q4

REPORT INFORMATION
  Report Type: Spontaneous
  Country: KZ (occurrence: KZ)
  Receive Date: 20231113
  Receipt Date: 20231124
  Transmission Date: 20240109
  Serious: Yes (Other)
  Sender: FDA-Public Use
  Company Number: KZ-JNJFOC-20231114805

PATIENT
  Age: 76 Year
  Sex: Male
  Weight: 75 kg

DRUGS (7)
  1. DARZALEX [Suspect]
     Active Substance: DARATUMUMAB
     Indication: Plasma cell myeloma
     Dosage: 20 MG/ML
     Route: 041
     Dates: start: 20230515
  2. MELPHALAN [Suspect]
     Active Substance: MELPHALAN
     Indication: Plasma cell myeloma
     Route: 065
  3. PREDNISOLONE [Suspect]
     Active Substance: PREDNISOLONE
     Indication: Plasma cell myeloma
     Route: 065
  4. GAMMANORM [Concomitant]
     Active Substance: HUMAN IMMUNOGLOBULIN G
     Dosage: SOLUTION 20 ML SUBCUTANEOUSLY X 1 TIME PER WEEK - CONSTANTLY
     Route: 058
  5. CARVEDILOL [Concomitant]
     Active Substance: CARVEDILOL
     Dosage: 6.25 MG X 2 TIMES A DAY PULSE CONTROL AT LEAST 55-60 BEATS/
  6. AMIODARONE HYDROCHLORIDE [Concomitant]
     Active Substance: AMIODARONE HYDROCHLORIDE
     Indication: Acid base balance
     Dosage: 1 IN THE MORNING
  7. DIGOXIN [Concomitant]
     Active Substance: DIGOXIN

REACTIONS (3)
  - Cytopenia [Recovered/Resolved]
  - Hypoproteinaemia [Recovered/Resolved]
  - Hypoalbuminaemia [Recovered/Resolved]

NARRATIVE: CASE EVENT DATE: 20230530
